FAERS Safety Report 12059188 (Version 1)
Quarter: 2016Q1

REPORT INFORMATION
  Report Type: Spontaneous
  Country: US (occurrence: US)
  Receive Date: 20160210
  Receipt Date: 20160210
  Transmission Date: 20160526
  Serious: No
  Sender: FDA-Public Use
  Company Number: US-TEVA-628061ACC

PATIENT
  Sex: Female
  Weight: 4.98 kg

DRUGS (2)
  1. PARAGARD T 380A [Suspect]
     Active Substance: COPPER
     Indication: CONTRACEPTION
     Dates: start: 20151223, end: 20160108
  2. PRENATAL VITAMINS [Concomitant]
     Active Substance: VITAMINS
     Indication: BREAST FEEDING

REACTIONS (2)
  - Device expulsion [Recovered/Resolved]
  - Exposure during breast feeding [Unknown]
